FAERS Safety Report 21935233 (Version 1)
Quarter: 2023Q1

REPORT INFORMATION
  Report Type: Spontaneous
  Country: FR (occurrence: FR)
  Receive Date: 20230201
  Receipt Date: 20230201
  Transmission Date: 20230417
  Serious: Yes (Other)
  Sender: FDA-Public Use
  Company Number: None

PATIENT
  Age: 61 Year
  Sex: Female

DRUGS (2)
  1. CARBOPLATIN [Suspect]
     Active Substance: CARBOPLATIN
     Indication: Neoplasm malignant
     Dates: start: 20220610
  2. FLUOROURACIL [Suspect]
     Active Substance: FLUOROURACIL
     Indication: Neoplasm malignant
     Dates: start: 20220610

REACTIONS (3)
  - Pancytopenia [Recovered/Resolved]
  - Haemorrhage [Recovered/Resolved]
  - Hyperthermia [Recovered/Resolved]

NARRATIVE: CASE EVENT DATE: 20220623
